FAERS Safety Report 8089446-0 (Version None)
Quarter: 2012Q1

REPORT INFORMATION
  Report Type: 
  Country: None (occurrence: None)
  Receive Date: 20120128
  Receipt Date: 20110705
  Transmission Date: 20120608
  Serious: No
  Sender: FDA-Public Use
  Company Number: US-ABBOTT-11P-163-0834790-00

PATIENT
  Age: 45 Year
  Sex: Female

DRUGS (4)
  1. LIPITOR [Concomitant]
     Indication: BLOOD CHOLESTEROL INCREASED
     Dosage: 20 MG DAILY
  2. LASIX [Concomitant]
     Indication: FLUID RETENTION
     Dosage: 10 MG DAILY
  3. HUMIRA [Suspect]
     Indication: PSORIASIS
     Dates: start: 20110613, end: 20110613
  4. METOPROLOL TARTRATE [Concomitant]
     Indication: HYPERTROPHIC CARDIOMYOPATHY
     Dosage: 50 MG DAILY

REACTIONS (6)
  - MALAISE [None]
  - DIZZINESS [None]
  - TEARFULNESS [None]
  - NAUSEA [None]
  - FATIGUE [None]
  - AFFECT LABILITY [None]
